FAERS Safety Report 9024298 (Version 2)
Quarter: 2013Q4

REPORT INFORMATION
  Report Type: Report from Study
  Country: MX (occurrence: MX)
  Receive Date: 20130121
  Receipt Date: 20131111
  Transmission Date: 20140711
  Serious: Yes (Death)
  Sender: FDA-Public Use
  Company Number: PHHY2013MX005071

PATIENT
  Sex: Female

DRUGS (1)
  1. GLIVEC [Suspect]
     Indication: ACUTE MYELOID LEUKAEMIA
     Dosage: 600 MG, UNK
     Dates: start: 20111006

REACTIONS (4)
  - Death [Fatal]
  - Influenza [Unknown]
  - Pyrexia [Unknown]
  - Malaise [Unknown]
